FAERS Safety Report 22124132 (Version 1)
Quarter: 2023Q1

REPORT INFORMATION
  Report Type: Spontaneous
  Country: CZ (occurrence: CZ)
  Receive Date: 20230322
  Receipt Date: 20230322
  Transmission Date: 20230418
  Serious: Yes (Death, Other)
  Sender: FDA-Public Use
  Company Number: CZ-AMGEN-CZESP2023046676

PATIENT

DRUGS (1)
  1. REPATHA [Suspect]
     Active Substance: EVOLOCUMAB
     Indication: Type IIa hyperlipidaemia
     Route: 065

REACTIONS (6)
  - Death [Fatal]
  - Adverse reaction [Unknown]
  - Drug intolerance [Unknown]
  - Somatic symptom disorder [Unknown]
  - Ill-defined disorder [Unknown]
  - Therapy partial responder [Unknown]
